FAERS Safety Report 8356796-X (Version None)
Quarter: 2012Q2

REPORT INFORMATION
  Report Type: 
  Country: None (occurrence: None)
  Receive Date: 20120514
  Receipt Date: 20120510
  Transmission Date: 20120825
  Serious: No
  Sender: FDA-Public Use
  Company Number: US-PFIZER INC-2012114296

PATIENT
  Sex: Female
  Weight: 73 kg

DRUGS (6)
  1. THEOPHYLLINE [Concomitant]
     Indication: ASTHMA
     Dosage: UNK, DAILY
  2. CHANTIX [Suspect]
     Dosage: UNK
     Dates: start: 20120501
  3. SINGULAIR [Concomitant]
     Indication: ASTHMA
     Dosage: UNK, DAILY
  4. ADVAIR DISKUS 100/50 [Concomitant]
     Indication: ASTHMA
     Dosage: UNK, 2X/DAY
  5. ZYRTEC [Concomitant]
     Indication: ASTHMA
     Dosage: UNK, DAILY
  6. CHANTIX [Suspect]
     Indication: SMOKING CESSATION THERAPY
     Dosage: 0.5 MG, DAILY
     Dates: start: 20120501, end: 20120501

REACTIONS (4)
  - ABDOMINAL DISCOMFORT [None]
  - NAUSEA [None]
  - ABNORMAL DREAMS [None]
  - DECREASED APPETITE [None]
